FAERS Safety Report 17558645 (Version 2)
Quarter: 2020Q1

REPORT INFORMATION
  Report Type: Report from Study
  Country: CA (occurrence: CA)
  Receive Date: 20200318
  Receipt Date: 20200324
  Transmission Date: 20200409
  Serious: Yes (Hospitalization)
  Sender: FDA-Public Use
  Company Number: NVSC2020CA069854

PATIENT
  Age: 4 Year
  Sex: Female
  Weight: 18 kg

DRUGS (5)
  1. AMOXICILLINE [Concomitant]
     Active Substance: AMOXICILLIN
     Indication: EAR INFECTION
     Dosage: 825 MG, BID
     Route: 048
     Dates: start: 20200227
  2. DABRAFENIB [Suspect]
     Active Substance: DABRAFENIB
     Indication: GLIOMA
     Dosage: 50 MG, BID
     Route: 048
     Dates: start: 20190718, end: 20200308
  3. TRAMETINIB [Suspect]
     Active Substance: TRAMETINIB
     Indication: GLIOMA
     Dosage: 1 MG, QD
     Route: 048
     Dates: start: 20190718, end: 20200308
  4. DABRAFENIB [Suspect]
     Active Substance: DABRAFENIB
     Dosage: 50 MG, BID
     Route: 048
     Dates: start: 20200314
  5. TRAMETINIB [Suspect]
     Active Substance: TRAMETINIB
     Dosage: 1 MG, QD
     Route: 048
     Dates: start: 20200315

REACTIONS (1)
  - Viral myositis [Recovered/Resolved]

NARRATIVE: CASE EVENT DATE: 20200306
